FAERS Safety Report 5410387-9 (Version None)
Quarter: 2007Q3

REPORT INFORMATION
  Report Type: 
  Country: None (occurrence: None)
  Receive Date: 20070808
  Receipt Date: 20070730
  Transmission Date: 20080115
  Serious: Yes (Hospitalization)
  Sender: FDA-Public Use
  Company Number: 230014K07CAN

PATIENT
  Sex: Female

DRUGS (3)
  1. REBIF [Suspect]
     Indication: MULTIPLE SCLEROSIS
     Dates: start: 20061019
  2. IBUPROFEN [Concomitant]
  3. COTYLENOL [Concomitant]

REACTIONS (4)
  - BACK PAIN [None]
  - CYSTITIS [None]
  - DYSURIA [None]
  - PAIN IN EXTREMITY [None]
